FAERS Safety Report 14991530 (Version 1)
Quarter: 2018Q2

REPORT INFORMATION
  Report Type: Spontaneous
  Country: US (occurrence: US)
  Receive Date: 20180608
  Receipt Date: 20180608
  Transmission Date: 20180711
  Serious: Yes (Hospitalization)
  Sender: FDA-Public Use
  Company Number: US-GLAXOSMITHKLINE-US2018GSK101862

PATIENT
  Sex: Female

DRUGS (9)
  1. ANORO ELLIPTA [Interacting]
     Active Substance: UMECLIDINIUM BROMIDE\VILANTEROL TRIFENATATE
     Indication: WHEEZING
  2. VENTOLIN [Suspect]
     Active Substance: ALBUTEROL SULFATE
     Indication: WHEEZING
  3. VENTOLIN [Suspect]
     Active Substance: ALBUTEROL SULFATE
     Indication: DYSPNOEA
     Dosage: UNK
     Dates: start: 20180502
  4. VENTOLIN [Suspect]
     Active Substance: ALBUTEROL SULFATE
     Indication: CHRONIC OBSTRUCTIVE PULMONARY DISEASE
  5. ANORO ELLIPTA [Interacting]
     Active Substance: UMECLIDINIUM BROMIDE\VILANTEROL TRIFENATATE
     Indication: DYSPNOEA
     Dosage: UNK
     Dates: start: 20180502
  6. INCRUSE ELLIPTA [Suspect]
     Active Substance: UMECLIDINIUM BROMIDE
     Indication: DYSPNOEA
     Dosage: UNK
     Dates: start: 20180502
  7. INCRUSE ELLIPTA [Interacting]
     Active Substance: UMECLIDINIUM BROMIDE
     Indication: CHRONIC OBSTRUCTIVE PULMONARY DISEASE
  8. ANORO ELLIPTA [Interacting]
     Active Substance: UMECLIDINIUM BROMIDE\VILANTEROL TRIFENATATE
     Indication: CHRONIC OBSTRUCTIVE PULMONARY DISEASE
  9. INCRUSE ELLIPTA [Interacting]
     Active Substance: UMECLIDINIUM BROMIDE
     Indication: WHEEZING

REACTIONS (2)
  - Dyspnoea [Unknown]
  - Labelled drug-drug interaction medication error [Unknown]
